FAERS Safety Report 5223923-2 (Version None)
Quarter: 2007Q1

REPORT INFORMATION
  Report Type: 
  Country: None (occurrence: None)
  Receive Date: 20070130
  Receipt Date: 20070119
  Transmission Date: 20070707
  Serious: Yes (Other)
  Sender: FDA-Public Use
  Company Number: US-ROCHE-455999

PATIENT
  Age: 69 Year
  Sex: Female
  Weight: 68 kg

DRUGS (4)
  1. PEGASYS [Suspect]
     Dosage: FORM REPORTED AS INJ.
     Route: 050
     Dates: start: 20060313
  2. COPEGUS [Suspect]
     Route: 048
     Dates: start: 20060313
  3. COUMADIN [Concomitant]
     Route: 048
  4. SYNTHROID [Concomitant]

REACTIONS (7)
  - ALOPECIA [None]
  - FATIGUE [None]
  - HAEMOGLOBIN DECREASED [None]
  - PULMONARY HYPERTENSION [None]
  - RED BLOOD CELL COUNT DECREASED [None]
  - WEIGHT DECREASED [None]
  - WHITE BLOOD CELL COUNT DECREASED [None]
